FAERS Safety Report 4803894-0 (Version None)
Quarter: 2005Q3

REPORT INFORMATION
  Report Type: 
  Country: None (occurrence: None)
  Receive Date: 20050920
  Receipt Date: 20050627
  Transmission Date: 20060218
  Serious: No
  Sender: FDA-Public Use
  Company Number: US-YAMANOUCHI-YPA20050345

PATIENT
  Age: 80 Year
  Sex: Female
  Weight: 90.7194 kg

DRUGS (6)
  1. VESICARE [Suspect]
     Indication: HYPERTONIC BLADDER
     Dosage: 5 MG QD PO
     Route: 048
     Dates: start: 20050501, end: 20050617
  2. DIOVAN HCT [Concomitant]
  3. PREMARIN  /NEZ/ [Concomitant]
  4. MULTI-VITAMINS [Concomitant]
  5. OCUVITE [Concomitant]
  6. SPIRIVA ^BOEHRINGER INGELHEIM^ [Concomitant]

REACTIONS (1)
  - DRUG INEFFECTIVE [None]
